FAERS Safety Report 9269821 (Version 1)
Quarter: 2013Q2

REPORT INFORMATION
  Report Type: Report from Study
  Country: US (occurrence: US)
  Receive Date: 20130503
  Receipt Date: 20130503
  Transmission Date: 20140414
  Serious: Yes (Other)
  Sender: FDA-Public Use
  Company Number: US-BAYER-2013-055248

PATIENT
  Age: 71 Year
  Sex: Male
  Weight: 65.77 kg

DRUGS (9)
  1. RIVAROXABAN [Suspect]
     Indication: CEREBROVASCULAR ACCIDENT PROPHYLAXIS
     Dosage: 20 MG, UNK
     Route: 048
     Dates: start: 20121130, end: 20130418
  2. RIVAROXABAN [Suspect]
     Indication: ATRIAL FIBRILLATION
  3. ACETYLSALICYLIC ACID({=100 MG) [Suspect]
     Indication: ATRIAL FIBRILLATION
     Dosage: 81 MG, UNK
     Route: 048
  4. HYDROCHLOROTHIAZIDE [Concomitant]
     Indication: HYPERTENSION
     Dosage: 25 MG, UNK
     Route: 048
  5. DIGOXIN [Concomitant]
     Indication: ATRIAL FIBRILLATION
     Dosage: .625 MG, UNK
     Route: 048
     Dates: start: 2009
  6. IRBESARTAN [Concomitant]
     Indication: HYPERTENSION
     Dosage: 225 MG, UNK
     Route: 048
     Dates: start: 2011
  7. IRBESARTAN [Concomitant]
     Indication: BLOOD CHOLESTEROL INCREASED
     Dosage: 225 MG, UNK
     Route: 048
     Dates: start: 2011
  8. METOPROLOL [Concomitant]
     Indication: ATRIAL FIBRILLATION
     Dosage: 25 MG, UNK
     Route: 048
     Dates: start: 2010
  9. TRICOR [Concomitant]
     Indication: BLOOD TRIGLYCERIDES ABNORMAL
     Dosage: 145 MG, UNK
     Route: 048

REACTIONS (1)
  - Haemarthrosis [Not Recovered/Not Resolved]
